FAERS Safety Report 7179380-2 (Version None)
Quarter: 2010Q4

REPORT INFORMATION
  Report Type: 
  Country: None (occurrence: None)
  Receive Date: 20101221
  Receipt Date: 20101213
  Transmission Date: 20110411
  Serious: Yes (Other)
  Sender: FDA-Public Use
  Company Number: US-US-EMD SERONO, INC.-231431J10USA

PATIENT
  Sex: Female

DRUGS (7)
  1. REBIF [Suspect]
     Indication: MULTIPLE SCLEROSIS
     Route: 058
     Dates: start: 20100201, end: 20100727
  2. TEGRETOL [Concomitant]
     Indication: NEURALGIA
  3. TEGRETOL [Concomitant]
     Indication: SKIN SENSITISATION
  4. NORTRIPTYLINE [Concomitant]
     Indication: NEURALGIA
  5. NORTRIPTYLINE [Concomitant]
     Indication: SKIN SENSITISATION
  6. NEURONTIN [Concomitant]
     Indication: NEURALGIA
  7. NEURONTIN [Concomitant]
     Indication: SKIN SENSITISATION

REACTIONS (7)
  - ALOPECIA [None]
  - BONE PAIN [None]
  - HALLUCINATION [None]
  - INFLUENZA LIKE ILLNESS [None]
  - INJECTION SITE REACTION [None]
  - MUSCLE SPASMS [None]
  - SKIN BURNING SENSATION [None]
